FAERS Safety Report 4521236-5 (Version None)
Quarter: 2004Q4

REPORT INFORMATION
  Report Type: 
  Country: None (occurrence: None)
  Receive Date: 20041206
  Receipt Date: 20041119
  Transmission Date: 20050328
  Serious: Yes (Other)
  Sender: FDA-Public Use
  Company Number: 2004-BP-12210RO

PATIENT
  Age: 41 Year
  Sex: Male

DRUGS (7)
  1. METHADONE HCL [Suspect]
     Indication: DRUG THERAPY
     Dosage: 14 MG PO
     Route: 048
  2. BACTRIM [Suspect]
     Dosage: 3 IN 1 WK
  3. AMOXICILLINE-CLAVULANATE (AMOXI-CLAVULANICO) [Concomitant]
  4. HYDROXYZINE [Concomitant]
  5. IMIPENEM (IMIPENEM) [Concomitant]
  6. MIDAZOLAM HCL [Concomitant]
  7. OMEPRAZOLE [Concomitant]

REACTIONS (2)
  - DRUG INTERACTION [None]
  - ELECTROCARDIOGRAM QT CORRECTED INTERVAL PROLONGED [None]
